FAERS Safety Report 9626902 (Version 2)
Quarter: 2013Q4

REPORT INFORMATION
  Report Type: Report from Study
  Country: JP (occurrence: JP)
  Receive Date: 20131016
  Receipt Date: 20131016
  Transmission Date: 20140711
  Serious: Yes (Hospitalization)
  Sender: FDA-Public Use
  Company Number: JP-TAKEDA-TCI2013A04542

PATIENT
  Age: 50 Year
  Sex: Male
  Weight: 59 kg

DRUGS (4)
  1. LANSOPRAZOLE [Suspect]
     Indication: PROPHYLAXIS AGAINST GASTROINTESTINAL ULCER
     Dosage: 20 MG, QD
     Route: 048
     Dates: start: 20120925
  2. LANSOPRAZOLE [Suspect]
     Dosage: 20 MG, QD
     Route: 048
     Dates: start: 20120417, end: 20120924
  3. LOXONIN [Concomitant]
     Indication: BACK PAIN
     Route: 048
     Dates: start: 20120405, end: 20130725
  4. LOXONIN [Concomitant]
     Indication: BACK PAIN

REACTIONS (1)
  - Intervertebral disc protrusion [Recovering/Resolving]
